FAERS Safety Report 4281625-3 (Version None)
Quarter: 2004Q1

REPORT INFORMATION
  Report Type: 
  Country: None (occurrence: None)
  Receive Date: 20040105
  Receipt Date: 20030219
  Transmission Date: 20041129
  Serious: Yes (Other)
  Sender: FDA-Public Use
  Company Number: US010712

PATIENT
  Age: 24 Year
  Sex: Male

DRUGS (1)
  1. ACTIQ [Suspect]
     Dates: start: 20030219, end: 20030219

REACTIONS (1)
  - DRUG ABUSER [None]
